FAERS Safety Report 23761591 (Version 1)
Quarter: 2024Q2

REPORT INFORMATION
  Report Type: Spontaneous
  Country: US (occurrence: US)
  Receive Date: 20240419
  Receipt Date: 20240419
  Transmission Date: 20240716
  Serious: Yes (Other)
  Sender: FDA-Public Use
  Company Number: US-GRAVITIPHARMA-GRA-2404-US-SPO-0075

PATIENT

DRUGS (1)
  1. BUPROPION HYDROCHLORIDE [Suspect]
     Active Substance: BUPROPION HYDROCHLORIDE
     Indication: Product used for unknown indication

REACTIONS (7)
  - Anxiety [Unknown]
  - Heart rate increased [Unknown]
  - Palpitations [Unknown]
  - Panic attack [Unknown]
  - Blood pressure increased [Unknown]
  - Dyspnoea [Unknown]
  - Product substitution issue [Unknown]
